FAERS Safety Report 13930264 (Version 1)
Quarter: 2017Q3

REPORT INFORMATION
  Report Type: Spontaneous
  Country: PL (occurrence: PL)
  Receive Date: 20170901
  Receipt Date: 20170901
  Transmission Date: 20171127
  Serious: Yes (Other)
  Sender: FDA-Public Use
  Company Number: PL-TEVA-801470ISR

PATIENT
  Age: 38 Year
  Sex: Male

DRUGS (2)
  1. CARBOPLATIN. [Suspect]
     Active Substance: CARBOPLATIN
     Indication: OESOPHAGEAL CARCINOMA
     Dosage: 4 CYCLES; REGIMEN: CARBOPLATIN AUC2 + PACLITAXEL 50 MG/M2, EVERY 7 DAYS
     Dates: start: 201507, end: 201508
  2. PACLITAXEL. [Suspect]
     Active Substance: PACLITAXEL
     Indication: OESOPHAGEAL CARCINOMA
     Dosage: 4 CYCLES; REGIMEN: CARBOPLATIN AUC2 + PACLITAXEL 50 MG/M2, EVERY 7 DAYS
     Dates: start: 201507, end: 201508

REACTIONS (1)
  - Metastatic lymphoma [Unknown]

NARRATIVE: CASE EVENT DATE: 201510
